FAERS Safety Report 16747240 (Version 4)
Quarter: 2020Q4

REPORT INFORMATION
  Report Type: Spontaneous
  Country: US (occurrence: US)
  Receive Date: 20190827
  Receipt Date: 20201211
  Transmission Date: 20210113
  Serious: No
  Sender: FDA-Public Use
  Company Number: US-ALLERGAN-1934668US

PATIENT
  Sex: Male
  Weight: 86.18 kg

DRUGS (4)
  1. BOTOX [Suspect]
     Active Substance: ONABOTULINUMTOXINA
     Indication: PAIN
  2. BOTOX [Suspect]
     Active Substance: ONABOTULINUMTOXINA
     Indication: PAIN IN EXTREMITY
     Dosage: UNK UNK, SINGLE
     Route: 065
     Dates: start: 20190727, end: 20190727
  3. BOTOX [Suspect]
     Active Substance: ONABOTULINUMTOXINA
     Indication: ARTHRALGIA
     Dosage: UNK UNK, SINGLE
     Route: 065
     Dates: start: 20191102, end: 20191102
  4. BOTOX [Suspect]
     Active Substance: ONABOTULINUMTOXINA
     Indication: PAIN IN JAW

REACTIONS (11)
  - Post-traumatic stress disorder [Not Recovered/Not Resolved]
  - Asthenia [Unknown]
  - Depression [Unknown]
  - Mental impairment [Unknown]
  - Loss of personal independence in daily activities [Unknown]
  - Vision blurred [Unknown]
  - Dyspnoea [Recovering/Resolving]
  - Fatigue [Unknown]
  - Confusional state [Unknown]
  - Off label use [Unknown]
  - Muscle fatigue [Unknown]

NARRATIVE: CASE EVENT DATE: 201908
